FAERS Safety Report 9617834 (Version 2)
Quarter: 2013Q4

REPORT INFORMATION
  Report Type: Spontaneous
  Country: US (occurrence: US)
  Receive Date: 20131011
  Receipt Date: 20131014
  Transmission Date: 20140711
  Serious: Yes (Hospitalization)
  Sender: FDA-Public Use
  Company Number: US-ROCHE-1287846

PATIENT
  Sex: Male
  Weight: 111.23 kg

DRUGS (1)
  1. XOLAIR [Suspect]
     Indication: ASTHMA
     Route: 065
     Dates: start: 2012, end: 2013

REACTIONS (3)
  - Asthma [Not Recovered/Not Resolved]
  - Food allergy [Not Recovered/Not Resolved]
  - Drug ineffective [Unknown]
